FAERS Safety Report 5503563-8 (Version None)
Quarter: 2007Q4

REPORT INFORMATION
  Report Type: 
  Country: None (occurrence: None)
  Receive Date: 20071029
  Receipt Date: 20071016
  Transmission Date: 20080405
  Serious: Yes (Life-Threatening)
  Sender: FDA-Public Use
  Company Number: 2006JP001463

PATIENT
  Age: 51 Year
  Sex: Male
  Weight: 56 kg

DRUGS (17)
  1. FUNGUARD(MICAFUNGIN) INJECTION [Suspect]
     Dosage: 150 MG, UID/QD, IV DRIP; 300 MG, UID/QD, IV DRIP
     Route: 041
     Dates: start: 20060508, end: 20060509
  2. FUNGUARD(MICAFUNGIN) INJECTION [Suspect]
     Dosage: 150 MG, UID/QD, IV DRIP; 300 MG, UID/QD, IV DRIP
     Route: 041
     Dates: start: 20060518, end: 20060518
  3. VFEND [Concomitant]
  4. VFEND [Concomitant]
  5. TARGOCID [Concomitant]
  6. CIPROFLAXACIN [Concomitant]
  7. MEROPEN (MEROPENEM) [Concomitant]
  8. OMEPRAZOLE [Concomitant]
  9. NEUART [Concomitant]
  10. ORGARAN [Concomitant]
  11. HUMULIN (INSULIN HUMAN INJECTION, ISOPHANE) [Concomitant]
  12. SOL MEDROL (METHYLPREDNISOLONE, SUCCINATE SODIUM) [Concomitant]
  13. FAMOTIDINE [Concomitant]
  14. PREDOPA (DOPAMINE HYDROCHLORIDE) [Concomitant]
  15. FENTANYL CITRATE [Concomitant]
  16. DIPRIVAN [Concomitant]
  17. EPIQUICK (EPINEPHRINE) [Concomitant]

REACTIONS (15)
  - BLINDNESS [None]
  - BRADYCARDIA [None]
  - CARDIAC ARREST [None]
  - CONTINUOUS HAEMODIAFILTRATION [None]
  - HAEMODIALYSIS [None]
  - HAEMOGLOBINURIA [None]
  - HYPOPNOEA [None]
  - HYPOTENSION [None]
  - INTRAVASCULAR HAEMOLYSIS [None]
  - MITRAL VALVE INCOMPETENCE [None]
  - RENAL FAILURE ACUTE [None]
  - SHOCK [None]
  - STRESS ULCER [None]
  - TRICUSPID VALVE INCOMPETENCE [None]
  - VENTRICULAR TACHYCARDIA [None]
